FAERS Safety Report 22351073 (Version 1)
Quarter: 2023Q2

REPORT INFORMATION
  Report Type: Spontaneous
  Country: US (occurrence: None)
  Receive Date: 20230521
  Receipt Date: 20230521
  Transmission Date: 20230722
  Serious: Yes (Hospitalization)
  Sender: FDA-Public Use
  Company Number: None

PATIENT
  Sex: Female
  Weight: 60.78 kg

DRUGS (11)
  1. KISQALI [Suspect]
     Active Substance: RIBOCICLIB
     Indication: Breast cancer female
     Dosage: OTHER FREQUENCY : 21 DAYS ON, 7 D OF;?
     Route: 048
     Dates: start: 202210
  2. ADVAIR DISKUS [Concomitant]
     Active Substance: FLUTICASONE PROPIONATE\SALMETEROL XINAFOATE
  3. AMLODIPINE [Concomitant]
     Active Substance: AMLODIPINE BESYLATE
  4. ATENOLOL\CHLORTHALIDONE [Concomitant]
     Active Substance: ATENOLOL\CHLORTHALIDONE
  5. DULOXETINE [Concomitant]
     Active Substance: DULOXETINE
  6. FOLIC ACID [Concomitant]
     Active Substance: FOLIC ACID
  7. KLOR-CON [Concomitant]
     Active Substance: POTASSIUM CHLORIDE
  8. LETROZOLE [Concomitant]
     Active Substance: LETROZOLE
  9. MIRTAZAPINE [Concomitant]
     Active Substance: MIRTAZAPINE
  10. THIAMINE [Concomitant]
     Active Substance: THIAMINE
  11. VITAMIN D3 [Concomitant]
     Active Substance: CHOLECALCIFEROL

REACTIONS (1)
  - Transient ischaemic attack [None]
